FAERS Safety Report 5141907-X (Version None)
Quarter: 2006Q4

REPORT INFORMATION
  Report Type: 
  Country: None (occurrence: None)
  Receive Date: 20060919
  Receipt Date: 20060531
  Transmission Date: 20070319
  Serious: No
  Sender: FDA-Public Use
  Company Number: 2006US001197

PATIENT
  Age: 67 Year
  Sex: Female

DRUGS (7)
  1. VESICARE [Suspect]
     Indication: POLLAKIURIA
     Dosage: SEE IMAGE
     Route: 048
     Dates: start: 20060501
  2. VESICARE [Suspect]
     Indication: POLLAKIURIA
     Dosage: SEE IMAGE
     Route: 048
     Dates: start: 20060501
  3. LOPRESSOR [Concomitant]
  4. DIOVAN [Concomitant]
  5. CALCIUM (ASCORBIC ACID) [Concomitant]
  6. MULTI-VIT (VITAMIN NOS) [Concomitant]
  7. ASPIRIN [Concomitant]

REACTIONS (2)
  - DRUG INEFFECTIVE [None]
  - HOT FLUSH [None]
